FAERS Safety Report 12317362 (Version 3)
Quarter: 2016Q3

REPORT INFORMATION
  Report Type: Report from Study
  Country: US (occurrence: US)
  Receive Date: 20160429
  Receipt Date: 20160811
  Transmission Date: 20161109
  Serious: Yes (Other)
  Sender: FDA-Public Use
  Company Number: US-AMGEN-USASL2016048167

PATIENT
  Age: 46 Year
  Sex: Female

DRUGS (2)
  1. ENBREL [Suspect]
     Active Substance: ETANERCEPT
     Indication: RHEUMATOID ARTHRITIS
     Dosage: 50 MG, QWK
     Route: 065
     Dates: start: 20160224
  2. ENBREL [Suspect]
     Active Substance: ETANERCEPT
     Indication: PSORIATIC ARTHROPATHY

REACTIONS (13)
  - Sensory disturbance [Unknown]
  - Bronchitis [Unknown]
  - Dental care [Recovered/Resolved]
  - Pain in extremity [Unknown]
  - Oral pain [Unknown]
  - Oral surgery [Unknown]
  - Condition aggravated [Unknown]
  - Hypothyroidism [Unknown]
  - Cheilitis [Unknown]
  - Bone loss [Unknown]
  - Abscess oral [Unknown]
  - Arthralgia [Unknown]
  - Back pain [Unknown]

NARRATIVE: CASE EVENT DATE: 2016
